FAERS Safety Report 9834909 (Version 1)
Quarter: 2014Q1

REPORT INFORMATION
  Report Type: Spontaneous
  Country: US (occurrence: US)
  Receive Date: 20140122
  Receipt Date: 20140122
  Transmission Date: 20141002
  Serious: Yes (Hospitalization)
  Sender: FDA-Public Use
  Company Number: US-GLAXOSMITHKLINE-A1057670A

PATIENT
  Age: 60 Year
  Sex: Female

DRUGS (1)
  1. VENTOLIN [Suspect]
     Indication: PNEUMONIA
     Dosage: 90MCG UNKNOWN
     Route: 055
     Dates: start: 20110727

REACTIONS (2)
  - Investigation [Unknown]
  - Chronic obstructive pulmonary disease [Unknown]
